FAERS Safety Report 9760493 (Version 2)
Quarter: 2013Q4

REPORT INFORMATION
  Report Type: Report from Study
  Country: FR (occurrence: FR)
  Receive Date: 20131216
  Receipt Date: 20131224
  Transmission Date: 20140711
  Serious: Yes (Hospitalization)
  Sender: FDA-Public Use
  Company Number: FR-AMGEN-FRACT2013086917

PATIENT
  Age: 65 Year
  Sex: Male
  Weight: 77 kg

DRUGS (10)
  1. PANITUMUMAB [Suspect]
     Indication: TRANSITIONAL CELL CARCINOMA
     Dosage: 470 MG, UNK
     Route: 042
     Dates: start: 20120417
  2. METHOTREXATE [Concomitant]
     Indication: TRANSITIONAL CELL CARCINOMA
     Dosage: 59 MG, UNK
     Route: 042
     Dates: start: 20120416
  3. DOXORUBICIN                        /00330902/ [Concomitant]
     Indication: TRANSITIONAL CELL CARCINOMA
     Dosage: 59 MG, UNK
     Route: 042
     Dates: start: 20120417
  4. CISPLATIN [Concomitant]
     Indication: TRANSITIONAL CELL CARCINOMA
     Dosage: 178.5 MG, UNK
     Route: 042
     Dates: start: 20120417
  5. VINBLASTINE [Concomitant]
     Indication: TRANSITIONAL CELL CARCINOMA
     Dosage: 5.9 MG, UNK
     Route: 042
     Dates: start: 20120417
  6. FLUOXETINE [Concomitant]
     Indication: HYPERCHOLESTEROLAEMIA
     Route: 048
  7. ALPRAZOLAM [Concomitant]
     Indication: DEPRESSION
     Route: 048
  8. SEROPLEX [Concomitant]
     Indication: DEPRESSION
     Route: 048
  9. NEUPOGEN [Concomitant]
  10. ZOLPIDEM [Concomitant]
     Indication: DEPRESSION
     Route: 048

REACTIONS (2)
  - Dysphagia [Recovered/Resolved]
  - Vomiting [Recovered/Resolved]
